FAERS Safety Report 7050409-5 (Version None)
Quarter: 2010Q4

REPORT INFORMATION
  Report Type: 
  Country: None (occurrence: None)
  Receive Date: 20101013
  Receipt Date: 20100928
  Transmission Date: 20110411
  Serious: Yes (Death, Other)
  Sender: FDA-Public Use
  Company Number: 011279

PATIENT

DRUGS (2)
  1. BUSULFEX [Suspect]
     Indication: BONE MARROW CONDITIONING REGIMEN
     Dosage: 12.8 MG/KG, INTRAVENOUS
     Route: 042
  2. FLUDARABINE PHOSPHATE [Concomitant]

REACTIONS (2)
  - NON-HODGKIN'S LYMPHOMA RECURRENT [None]
  - THERAPEUTIC AGENT TOXICITY [None]
